FAERS Safety Report 12348478 (Version 1)
Quarter: 2016Q2

REPORT INFORMATION
  Report Type: Not Available
  Country: None (occurrence: US)
  Receive Date: 20160509
  Receipt Date: 20160509
  Transmission Date: 20160815
  Serious: No
  Sender: FDA-Public Use
  Company Number: US-AKORN-29507

PATIENT
  Sex: Female

DRUGS (1)
  1. CROMOLYN SODIUM OPHTHALMIC SOLUTION, USP [Suspect]
     Active Substance: CROMOLYN SODIUM

REACTIONS (1)
  - Drug ineffective [None]
